FAERS Safety Report 10021368 (Version 1)
Quarter: 2014Q1

REPORT INFORMATION
  Report Type: Spontaneous
  Country: US (occurrence: None)
  Receive Date: 20140318
  Receipt Date: 20140318
  Transmission Date: 20141002
  Serious: Yes (Other)
  Sender: FDA-Public Use
  Company Number: None

PATIENT
  Age: 49 Year
  Sex: Female
  Weight: 82.56 kg

DRUGS (1)
  1. SUMATRIPTAN [Suspect]
     Indication: MIGRAINE
     Dosage: 1 TABLET AT ONSET OF MIGRAINE AS NEEDED TAKEN BY MOUTH
     Route: 048
     Dates: start: 20140314

REACTIONS (5)
  - Headache [None]
  - Crying [None]
  - Muscle spasms [None]
  - Abdominal pain upper [None]
  - Chest discomfort [None]
